FAERS Safety Report 10332724 (Version 1)
Quarter: 2014Q3

REPORT INFORMATION
  Report Type: Spontaneous
  Country: US (occurrence: US)
  Receive Date: 20140722
  Receipt Date: 20140722
  Transmission Date: 20150326
  Serious: No
  Sender: FDA-Public Use
  Company Number: US-ASTRAZENECA-2013SE77934

PATIENT
  Sex: Female

DRUGS (1)
  1. SEROQUEL [Suspect]
     Active Substance: QUETIAPINE FUMARATE
     Route: 048
     Dates: start: 201304

REACTIONS (6)
  - Anxiety [Unknown]
  - Burning sensation [Unknown]
  - Insomnia [Unknown]
  - Chest discomfort [Unknown]
  - Drug dose omission [Unknown]
  - Intentional product misuse [Unknown]
